FAERS Safety Report 10885773 (Version 1)
Quarter: 2015Q1

REPORT INFORMATION
  Report Type: Spontaneous
  Country: US (occurrence: None)
  Receive Date: 20150302
  Receipt Date: 20150302
  Transmission Date: 20150721
  Serious: Yes (Other)
  Sender: FDA-Public Use
  Company Number: US-H14001-15-00293

PATIENT
  Age: 17 Year
  Sex: Male

DRUGS (4)
  1. HYPERTENSION THERAPY [Suspect]
     Active Substance: UNSPECIFIED INGREDIENT
     Indication: CEREBRAL VASOCONSTRICTION
     Dosage: EXTERNAL VENTRICULAR DRAIN
  2. STEROIDS (CORTICOSTEROIDS) (UNKNOWN) [Suspect]
     Active Substance: UNSPECIFIED INGREDIENT
     Indication: CEREBRAL VASOCONSTRICTION
     Dosage: EXTERNAL VENTRICULAR DRAIN
  3. NICARDIPINE [Suspect]
     Active Substance: NICARDIPINE
     Indication: CEREBRAL VASOCONSTRICTION
     Route: 037
  4. TRIPLE THERAPEUTIC HYPERVOLEMIA AND HEMODILUTION THERAPY (ALL OTHER THERAPEUTIC PRODUCTS) [Suspect]
     Active Substance: UNSPECIFIED INGREDIENT
     Indication: CEREBRAL VASOCONSTRICTION
     Dosage: EXTERNAL VENTRICULAR DRAIN

REACTIONS (2)
  - Cerebral vasoconstriction [None]
  - Posterior reversible encephalopathy syndrome [None]
